FAERS Safety Report 18413286 (Version 1)
Quarter: 2020Q4

REPORT INFORMATION
  Report Type: Spontaneous
  Country: US (occurrence: US)
  Receive Date: 20201021
  Receipt Date: 20201021
  Transmission Date: 20210114
  Serious: Yes (Other)
  Sender: FDA-Public Use
  Company Number: US-ASTRAZENECA-2020SF34672

PATIENT
  Age: 18 Year
  Sex: Male

DRUGS (4)
  1. LISINOPRIL. [Concomitant]
     Active Substance: LISINOPRIL
  2. QUETIAPINE. [Suspect]
     Active Substance: QUETIAPINE
     Indication: TOXICITY TO VARIOUS AGENTS
     Route: 048
  3. ONDANSETRON [Concomitant]
     Active Substance: ONDANSETRON
  4. METFORMIN [Concomitant]
     Active Substance: METFORMIN HYDROCHLORIDE

REACTIONS (3)
  - Drug abuse [Unknown]
  - Intentional product misuse [Unknown]
  - Off label use [Unknown]
